FAERS Safety Report 10267514 (Version 2)
Quarter: 2015Q1

REPORT INFORMATION
  Report Type: Report from Study
  Country: IL (occurrence: IL)
  Receive Date: 20140630
  Receipt Date: 20150128
  Transmission Date: 20150720
  Serious: Yes (Hospitalization, Other)
  Sender: FDA-Public Use
  Company Number: IL-SHIRE-IL201403438

PATIENT
  Age: 52 Year
  Sex: Female
  Weight: 67 kg

DRUGS (1)
  1. VELAGLUCERASE ALFA [Suspect]
     Active Substance: VELAGLUCERASE ALFA
     Indication: GAUCHER^S DISEASE
     Dosage: 15 UNITS/KG, 1X/2WKS, BIWEEKLY
     Route: 041
     Dates: start: 20120904, end: 20130401

REACTIONS (1)
  - Pulmonary hypertension [Unknown]
